FAERS Safety Report 10542424 (Version 2)
Quarter: 2014Q4

REPORT INFORMATION
  Report Type: Report from Study
  Country: DE (occurrence: DE)
  Receive Date: 20141026
  Receipt Date: 20141026
  Transmission Date: 20150529
  Serious: Yes (Hospitalization)
  Sender: FDA-Public Use
  Company Number: PHHO2014DE013459

PATIENT
  Age: 74 Year
  Sex: Female
  Weight: 60 kg

DRUGS (2)
  1. COMPARATOR LETROZOLE [Suspect]
     Active Substance: LETROZOLE
     Indication: BREAST CANCER
     Dosage: 2.5 MG, QD
     Route: 048
     Dates: start: 20140918, end: 20141001
  2. LEE011 [Suspect]
     Active Substance: RIBOCICLIB
     Indication: BREAST CANCER
     Dosage: 600 MG, QD
     Route: 048
     Dates: start: 20140918, end: 20141001

REACTIONS (4)
  - Dehydration [Recovering/Resolving]
  - Renal failure [Recovered/Resolved]
  - Electrolyte imbalance [Recovering/Resolving]
  - Urosepsis [Recovered/Resolved]

NARRATIVE: CASE EVENT DATE: 20140922
